FAERS Safety Report 7581542-7 (Version None)
Quarter: 2011Q2

REPORT INFORMATION
  Report Type: 
  Country: None (occurrence: None)
  Receive Date: 20110629
  Receipt Date: 20110624
  Transmission Date: 20111010
  Serious: Yes (Death, Hospitalization)
  Sender: FDA-Public Use
  Company Number: PHHY2011DE45625

PATIENT
  Sex: Male

DRUGS (2)
  1. SANDOSTATIN LAR [Suspect]
     Dosage: 30 MG, EVERY 28 DAYS
     Route: 030
     Dates: start: 20110523
  2. SANDOSTATIN LAR [Suspect]
     Indication: ACROMEGALY
     Dosage: 30 MG EVERY 28 DAYS
     Route: 030
     Dates: start: 20010101

REACTIONS (5)
  - OESOPHAGEAL CARCINOMA [None]
  - DEATH [None]
  - URINARY RETENTION [None]
  - JAUNDICE [None]
  - BLOOD PRESSURE FLUCTUATION [None]
